FAERS Safety Report 8061651-9 (Version None)
Quarter: 2012Q1

REPORT INFORMATION
  Report Type: 
  Country: None (occurrence: None)
  Receive Date: 20120123
  Receipt Date: 20120110
  Transmission Date: 20120608
  Serious: Yes (Other)
  Sender: FDA-Public Use
  Company Number: JP-BRISTOL-MYERS SQUIBB COMPANY-16356032

PATIENT
  Age: 66 Year
  Sex: Female

DRUGS (4)
  1. MIANSERIN HCL [Concomitant]
     Dosage: TABS INCREASED TO 60MG
  2. ABILIFY [Suspect]
     Indication: BIPOLAR DISORDER
     Dosage: INCREASED TO 6MG AND 9MG
     Route: 048
  3. MIRTAZAPINE [Concomitant]
     Dosage: TABS INCREASED TO 30MG
  4. QUETIAPINE FUMARATE [Concomitant]
     Dosage: TABS

REACTIONS (2)
  - STUPOR [None]
  - DECREASED APPETITE [None]
